FAERS Safety Report 15149924 (Version 1)
Quarter: 2018Q3

REPORT INFORMATION
  Report Type: Report from Study
  Country: US (occurrence: US)
  Receive Date: 20180716
  Receipt Date: 20180716
  Transmission Date: 20181010
  Serious: Yes (Hospitalization)
  Sender: FDA-Public Use
  Company Number: US-JNJFOC-20180533067

PATIENT
  Age: 77 Year
  Sex: Male

DRUGS (3)
  1. IMBRUVICA [Suspect]
     Active Substance: IBRUTINIB
     Indication: CHRONIC LYMPHOCYTIC LEUKAEMIA
     Route: 048
     Dates: start: 20180517, end: 2018
  2. GABAPENTIN. [Suspect]
     Active Substance: GABAPENTIN
     Indication: PRODUCT USED FOR UNKNOWN INDICATION
     Dosage: UNK UNK, BID
  3. RITUXAN [Suspect]
     Active Substance: RITUXIMAB
     Indication: PRODUCT USED FOR UNKNOWN INDICATION
     Dosage: UNK
     Route: 065

REACTIONS (11)
  - Cerebral haemorrhage [Unknown]
  - Fatigue [Unknown]
  - Contusion [Unknown]
  - Cough [Unknown]
  - Dizziness [Unknown]
  - Asthenia [Unknown]
  - Fall [Unknown]
  - Dysphonia [Unknown]
  - Adverse drug reaction [Unknown]
  - Eye contusion [Unknown]
  - Skin discolouration [Unknown]

NARRATIVE: CASE EVENT DATE: 201805
